FAERS Safety Report 7204543-7 (Version None)
Quarter: 2010Q4

REPORT INFORMATION
  Report Type: 
  Country: None (occurrence: None)
  Receive Date: 20101230
  Receipt Date: 20101220
  Transmission Date: 20110411
  Serious: Yes (Other)
  Sender: FDA-Public Use
  Company Number: PHHY2010JP52254

PATIENT
  Sex: Male

DRUGS (13)
  1. AFINITOR [Suspect]
     Indication: METASTATIC RENAL CELL CARCINOMA
     Dosage: 10 MG, DAILY
     Route: 048
     Dates: start: 20100615, end: 20100803
  2. AFINITOR [Suspect]
     Dosage: 5 MG
     Route: 048
     Dates: start: 20100917
  3. INTERFERON ALFA [Concomitant]
     Dosage: 6000000 IU, UNK
     Route: 042
     Dates: start: 20071205, end: 20090630
  4. NEXAVAR [Concomitant]
     Dosage: 800 MG, UNK
     Route: 048
     Dates: start: 20090707, end: 20100614
  5. LOXOPROFEN [Concomitant]
     Dosage: 120 MG, UNK
     Route: 048
  6. REBAMIPIDE [Concomitant]
     Dosage: 200 MG, UNK
     Route: 048
  7. MICARDIS [Concomitant]
     Dosage: 20 MG, UNK
     Route: 048
     Dates: start: 20100820
  8. MICARDIS [Concomitant]
     Dosage: 10 MG, UNK
     Route: 048
  9. MICARDIS [Concomitant]
     Dosage: 10 MG, UNK
     Route: 048
  10. GASTER D [Concomitant]
     Dosage: 20 MG, UNK
     Route: 048
  11. DUROTEP [Concomitant]
     Dosage: 8.4 MG, UNK
     Route: 062
  12. MAGMITT [Concomitant]
     Dosage: 1500 MG, UNK
     Route: 048
     Dates: start: 20100706
  13. ZOMETA [Concomitant]
     Indication: METASTATIC RENAL CELL CARCINOMA
     Dosage: UNK
     Route: 042
     Dates: start: 20101214, end: 20101214

REACTIONS (2)
  - HERPES ZOSTER [None]
  - HYPERKALAEMIA [None]
